FAERS Safety Report 4587931-7 (Version None)
Quarter: 2005Q1

REPORT INFORMATION
  Report Type: 
  Country: None (occurrence: None)
  Receive Date: 20050215
  Receipt Date: 20050204
  Transmission Date: 20050727
  Serious: Yes (Other)
  Sender: FDA-Public Use
  Company Number: 2005025935

PATIENT
  Age: 68 Year
  Sex: Male
  Weight: 57.6068 kg

DRUGS (5)
  1. LIPITOR [Suspect]
     Indication: BLOOD CHOLESTEROL INCREASED
     Dosage: 10 MG (10 MG, 1 IN 1 D), ORAL
     Route: 048
     Dates: end: 20041101
  2. DRUG, UNSPECIFIED (DRUG, UNSPECIFIED) [Suspect]
     Indication: LUNG ADENOCARCINOMA
     Dates: start: 20050128
  3. GLYBURIDE [Suspect]
     Indication: DIABETES MELLITUS
     Dates: end: 20050101
  4. ASPIRIN [Concomitant]
  5. TOLAZAMIDE (TOLAZAMIDE) [Concomitant]

REACTIONS (5)
  - ABASIA [None]
  - DIABETES MELLITUS INADEQUATE CONTROL [None]
  - LUNG ADENOCARCINOMA [None]
  - MUSCULAR WEAKNESS [None]
  - MYOCARDIAL INFARCTION [None]
